FAERS Safety Report 6030574-9 (Version None)
Quarter: 2009Q1

REPORT INFORMATION
  Report Type: 
  Country: None (occurrence: None)
  Receive Date: 20090106
  Receipt Date: 20090106
  Transmission Date: 20090719
  Serious: Yes (Life-Threatening, Hospitalization)
  Sender: FDA-Public Use
  Company Number: None

PATIENT
  Age: 52 Year
  Sex: Male
  Weight: 76.7 kg

DRUGS (2)
  1. IBUPROFEN [Suspect]
     Indication: PAIN
     Dosage: 800 MG TID PO
     Route: 048
     Dates: start: 20061117, end: 20081017
  2. ASPIRIN [Suspect]
     Dosage: 81 MG EVERY DAY PO
     Route: 048
     Dates: start: 20080612, end: 20081017

REACTIONS (6)
  - ABDOMINAL PAIN [None]
  - DUODENAL ULCER [None]
  - DYSPEPSIA [None]
  - GASTRIC ULCER [None]
  - GASTROINTESTINAL PERFORATION [None]
  - SYSTEMIC INFLAMMATORY RESPONSE SYNDROME [None]
